FAERS Safety Report 6680680-0 (Version None)
Quarter: 2010Q2

REPORT INFORMATION
  Report Type: 
  Country: None (occurrence: None)
  Receive Date: 20100414
  Receipt Date: 20100405
  Transmission Date: 20101027
  Serious: Yes (Other)
  Sender: FDA-Public Use
  Company Number: JP-JNJFOC-20100300115

PATIENT
  Age: 9 Year
  Sex: Male

DRUGS (3)
  1. RISPERDAL [Suspect]
     Indication: DRUG USE FOR UNKNOWN INDICATION
     Dosage: EITHER ON 1 MG/DAY OR 0.5 MG/DAY
     Route: 048
  2. RISPERDAL [Suspect]
     Route: 048
  3. FLUVOXAMINE MALEATE [Concomitant]
     Route: 048

REACTIONS (2)
  - ENURESIS [None]
  - URINE OUTPUT INCREASED [None]
